FAERS Safety Report 22015710 (Version 2)
Quarter: 2023Q1

REPORT INFORMATION
  Report Type: Spontaneous
  Country: FR (occurrence: FR)
  Receive Date: 20230221
  Receipt Date: 20230225
  Transmission Date: 20230418
  Serious: Yes (Death)
  Sender: FDA-Public Use
  Company Number: None

PATIENT
  Age: 1 Hour
  Sex: Male
  Weight: 2.28 kg

DRUGS (1)
  1. AMOXICILLIN [Suspect]
     Active Substance: AMOXICILLIN
     Indication: Foetal exposure during pregnancy
     Dosage: MATERNAL DOSE: FROM 01 MAY 2022 TO 01 MAY 2022 AT A DOSE OF 1 G
     Route: 064

REACTIONS (3)
  - Hypoxic-ischaemic encephalopathy [Fatal]
  - Bradycardia foetal [Fatal]
  - Foetal distress syndrome [Fatal]

NARRATIVE: CASE EVENT DATE: 20220501
